FAERS Safety Report 6268804-0 (Version None)
Quarter: 2009Q3

REPORT INFORMATION
  Report Type: 
  Country: None (occurrence: None)
  Receive Date: 20090710
  Receipt Date: 20090710
  Transmission Date: 20100115
  Serious: No
  Sender: FDA-Public Use
  Company Number: None

PATIENT
  Sex: Female
  Weight: 80.7403 kg

DRUGS (1)
  1. LANTUS [Suspect]
     Indication: DIABETES MELLITUS
     Dosage: 65 UNITS NOC IM
     Route: 030
     Dates: start: 20050101, end: 20090713

REACTIONS (2)
  - NEOPLASM MALIGNANT [None]
  - VISUAL IMPAIRMENT [None]
